FAERS Safety Report 6991471-5 (Version None)
Quarter: 2010Q3

REPORT INFORMATION
  Report Type: 
  Country: None (occurrence: None)
  Receive Date: 20100916
  Receipt Date: 20090825
  Transmission Date: 20110219
  Serious: No
  Sender: FDA-Public Use
  Company Number: US-WYE-H10723209

PATIENT
  Sex: Female

DRUGS (7)
  1. PRISTIQ [Suspect]
     Indication: DEPRESSION
     Route: 048
     Dates: start: 20090824
  2. BENTYL [Concomitant]
  3. PREMARIN [Concomitant]
  4. TRAMADOL [Concomitant]
  5. CLONAZEPAM [Concomitant]
  6. ATIVAN [Concomitant]
  7. BENADRYL [Concomitant]

REACTIONS (4)
  - BALANCE DISORDER [None]
  - HEADACHE [None]
  - TREMOR [None]
  - VISION BLURRED [None]
